FAERS Safety Report 25059202 (Version 2)
Quarter: 2025Q2

REPORT INFORMATION
  Report Type: Spontaneous
  Country: GB (occurrence: GB)
  Receive Date: 20250310
  Receipt Date: 20250425
  Transmission Date: 20250717
  Serious: Yes (Other)
  Sender: SAMSUNG BIOEPIS
  Company Number: None

PATIENT
  Age: 57 Year
  Sex: Male

DRUGS (1)
  1. INFLIXIMAB [Suspect]
     Active Substance: INFLIXIMAB
     Indication: Inflammatory bowel disease
     Dosage: INFLIXIMAB WOULD HAVE BEEN INTRAVENOUS 8 WEEKLY. 5MG/KG.
     Route: 042

REACTIONS (5)
  - Tooth loss [Recovering/Resolving]
  - Withdrawal syndrome [Unknown]
  - Abnormal weight gain [Recovering/Resolving]
  - Neuropsychological symptoms [Recovering/Resolving]
  - Off label use [Unknown]
